FAERS Safety Report 9792689 (Version 4)
Quarter: 2020Q3

REPORT INFORMATION
  Report Type: Spontaneous
  Country: US (occurrence: US)
  Receive Date: 20140102
  Receipt Date: 20200921
  Transmission Date: 20201103
  Serious: Yes (Hospitalization, Disabling, Other)
  Sender: FDA-Public Use
  Company Number: US-SANOFI-AVENTIS-2013SA020529

PATIENT
  Age: 27 Year
  Sex: Female

DRUGS (17)
  1. AMITRIPTYLINE HYDROCHLORIDE. [Concomitant]
     Active Substance: AMITRIPTYLINE HYDROCHLORIDE
     Dosage: 100 MG,UNK
  2. OXYCONTIN [Concomitant]
     Active Substance: OXYCODONE HYDROCHLORIDE
     Dosage: 15 MG,UNK
  3. PROCHLORPERAZINE EDISYLATE. [Concomitant]
     Active Substance: PROCHLORPERAZINE EDISYLATE
  4. AUBAGIO [Suspect]
     Active Substance: TERIFLUNOMIDE
     Indication: MULTIPLE SCLEROSIS
     Dosage: 14 MG,QD
     Route: 048
     Dates: start: 20130123
  5. MORPHINE SULFATE. [Concomitant]
     Active Substance: MORPHINE SULFATE
     Dosage: 15 MG,UNK
  6. PROZAC [Concomitant]
     Active Substance: FLUOXETINE HYDROCHLORIDE
     Dosage: 20 MG,UNK
  7. PROCHLORPERAZINE. [Suspect]
     Active Substance: PROCHLORPERAZINE
     Indication: MIGRAINE
  8. OXYBUTYNIN. [Concomitant]
     Active Substance: OXYBUTYNIN CHLORIDE
     Dosage: 5 MG,UNK
  9. PRAMIPEXOLE. [Concomitant]
     Active Substance: PRAMIPEXOLE
     Dosage: 1 MG,UNK
  10. PROCHLORPERAZINE MALEATE. [Concomitant]
     Active Substance: PROCHLORPERAZINE MALEATE
  11. AUBAGIO [Suspect]
     Active Substance: TERIFLUNOMIDE
     Dosage: 14 MG, QD
     Route: 048
  12. SOMA [Concomitant]
     Active Substance: CARISOPRODOL
     Dosage: 350 MG,UNK
  13. ARIPIPRAZOLE. [Suspect]
     Active Substance: ARIPIPRAZOLE
     Indication: MIGRAINE
  14. ADVAIR HFA [Suspect]
     Active Substance: FLUTICASONE PROPIONATE\SALMETEROL XINAFOATE
     Indication: MIGRAINE
  15. DEPAKOTE [Concomitant]
     Active Substance: DIVALPROEX SODIUM
     Dosage: 500 MG,UNK
  16. ABILIFY [Concomitant]
     Active Substance: ARIPIPRAZOLE
     Dosage: 10 MG,UNK
  17. SALMETEROL XINAFOATE [Concomitant]
     Active Substance: SALMETEROL XINAFOATE

REACTIONS (13)
  - Urinary tract obstruction [Unknown]
  - Chromaturia [Recovered/Resolved]
  - Menorrhagia [Recovered/Resolved]
  - Alopecia [Unknown]
  - Adverse drug reaction [Unknown]
  - Illness [Recovered/Resolved]
  - Sepsis [Recovered/Resolved]
  - Loss of personal independence in daily activities [Recovered/Resolved]
  - Product dose omission issue [Unknown]
  - Groin abscess [Recovered/Resolved]
  - Vaginal discharge [Recovered/Resolved]
  - Migraine [Unknown]
  - Headache [Recovered/Resolved]

NARRATIVE: CASE EVENT DATE: 201301
